FAERS Safety Report 4288726-4 (Version None)
Quarter: 2004Q1

REPORT INFORMATION
  Report Type: 
  Country: None (occurrence: None)
  Receive Date: 20040205
  Receipt Date: 20040123
  Transmission Date: 20041129
  Serious: Yes (Hospitalization)
  Sender: FDA-Public Use
  Company Number: FRWYE531023JAN04

PATIENT
  Age: 86 Year
  Sex: Female

DRUGS (4)
  1. EFFEXOR [Suspect]
     Dosage: ORAL
     Route: 048
  2. CARDENSIEL (BISOPROLOL, TABLET, 0) [Suspect]
     Dosage: ORAL
     Route: 048
  3. EPREX (EPOETIN ALFA, 0) [Suspect]
     Dosage: 5000 IU 1X PER 1 WK, SC
     Route: 058
     Dates: start: 20031027, end: 20031103
  4. FUMAFER (FERROUS FUMARATE, 0) [Suspect]
     Dosage: 200 MG 1X PER 2 DAY, ORAL
     Route: 048
     Dates: start: 20031027, end: 20031106

REACTIONS (1)
  - DEEP VEIN THROMBOSIS [None]
